FAERS Safety Report 6891400-9 (Version None)
Quarter: 2010Q3

REPORT INFORMATION
  Report Type: 
  Country: None (occurrence: None)
  Receive Date: 20100731
  Receipt Date: 20060612
  Transmission Date: 20110219
  Serious: No
  Sender: FDA-Public Use
  Company Number: US-PFIZER INC-2006074540

PATIENT
  Sex: Female
  Weight: 78.93 kg

DRUGS (16)
  1. DEPO-MEDROL [Suspect]
     Indication: SURGERY
     Route: 065
     Dates: start: 20060601
  2. DEPO-MEDROL [Suspect]
     Indication: COMPRESSION FRACTURE
  3. PREDNISONE [Concomitant]
     Route: 065
  4. MAXZIDE [Concomitant]
     Route: 065
  5. ZETIA [Concomitant]
     Route: 065
  6. IMDUR [Concomitant]
     Route: 065
  7. TRIMPEX [Concomitant]
     Route: 065
  8. PEPCID [Concomitant]
     Route: 065
  9. ATENOLOL [Concomitant]
     Route: 065
  10. METHOTREXATE [Concomitant]
     Route: 065
  11. LORTAB [Concomitant]
     Route: 065
  12. SENOKOT [Concomitant]
     Route: 065
  13. MAALOX [Concomitant]
     Route: 065
  14. LACTULOSE [Concomitant]
     Route: 065
  15. ACETAMINOPHEN [Concomitant]
     Route: 065
  16. AMBIEN [Concomitant]
     Route: 065

REACTIONS (2)
  - AMNESIA [None]
  - NECK PAIN [None]
